FAERS Safety Report 9869629 (Version 1)
Quarter: 2014Q1

REPORT INFORMATION
  Report Type: Spontaneous
  Country: CA (occurrence: CA)
  Receive Date: 20140205
  Receipt Date: 20140205
  Transmission Date: 20141002
  Serious: Yes (Hospitalization)
  Sender: FDA-Public Use
  Company Number: CA-009507513-1402CAN001176

PATIENT
  Age: 49 Year
  Sex: Male

DRUGS (3)
  1. PEGETRON [Suspect]
     Indication: HEPATITIS C
     Dosage: 120 MICROGRAM, QD
     Route: 065
     Dates: start: 20130618
  2. PEGETRON [Suspect]
     Dosage: 1000 MG, QD
     Route: 048
     Dates: start: 20130618
  3. VICTRELIS [Suspect]
     Indication: HEPATITIS C
     Dosage: 2400 MG, QD
     Route: 048
     Dates: start: 20130618

REACTIONS (1)
  - Hospitalisation [Unknown]
